FAERS Safety Report 7358636-4 (Version None)
Quarter: 2011Q1

REPORT INFORMATION
  Report Type: 
  Country: None (occurrence: None)
  Receive Date: 20110317
  Receipt Date: 20110309
  Transmission Date: 20110831
  Serious: Yes (Hospitalization, Congenital Anomaly)
  Sender: FDA-Public Use
  Company Number: GR-ELI_LILLY_AND_COMPANY-GR201103003560

PATIENT
  Sex: Female

DRUGS (2)
  1. ALPRAZOLAM [Concomitant]
     Indication: AFFECTIVE DISORDER
     Dosage: 0.5 MG, OCCASIONALLY
     Route: 064
     Dates: end: 20101220
  2. ZYPREXA [Suspect]
     Indication: AFFECTIVE DISORDER
     Dosage: 5 MG, DAILY (1/D)
     Route: 064
     Dates: end: 20101213

REACTIONS (4)
  - DRUG EXPOSURE DURING PREGNANCY [None]
  - POLYDACTYLY [None]
  - SMALL FOR DATES BABY [None]
  - PREMATURE BABY [None]
